FAERS Safety Report 19305475 (Version 2)
Quarter: 2021Q2

REPORT INFORMATION
  Report Type: Spontaneous
  Country: IN (occurrence: IN)
  Receive Date: 20210525
  Receipt Date: 20210604
  Transmission Date: 20210717
  Serious: No
  Sender: FDA-Public Use
  Company Number: IN-PFIZER INC-2021563686

PATIENT
  Age: 62 Year
  Sex: Female

DRUGS (6)
  1. PALBACE [Suspect]
     Active Substance: PALBOCICLIB
     Dosage: 125 MG, CYCLIC (ONCE DAILY)
     Route: 048
     Dates: start: 20200908
  2. FULVESTRANT INJECTION [Concomitant]
     Active Substance: FULVESTRANT
     Dosage: 500 MG((250X 2); NOTE: IM ON GLUTEAL REGION; DURATION: STAT)
     Route: 030
  3. ZOLEDRONIC ACID [Concomitant]
     Active Substance: ZOLEDRONIC ACID
     Dosage: 4 MG (IN 100ML NS IV OVER 30MINS)
     Route: 042
  4. PALBACE [Suspect]
     Active Substance: PALBOCICLIB
     Indication: BREAST CANCER METASTATIC
     Dosage: 125 MG, 1X/DAY
     Route: 048
     Dates: start: 20200422
  5. VITCOFOL [FOLIC ACID;NICOTINAMIDE;VITAMIN B12 NOS] [Concomitant]
     Dosage: 2CC, MONTHLY
     Route: 030
     Dates: start: 20210324
  6. SHELCAL [CALCIUM CARBONATE;COLECALCIFEROL] [Concomitant]
     Dosage: 500 MG, DAILY (1?0?0) AFTER FOOD

REACTIONS (3)
  - Neoplasm progression [Unknown]
  - Blood thyroid stimulating hormone increased [Unknown]
  - Blood glucose increased [Unknown]

NARRATIVE: CASE EVENT DATE: 20210320
